FAERS Safety Report 7551378-1 (Version None)
Quarter: 2011Q2

REPORT INFORMATION
  Report Type: 
  Country: None (occurrence: None)
  Receive Date: 20110616
  Receipt Date: 20110608
  Transmission Date: 20111010
  Serious: Yes (Other)
  Sender: FDA-Public Use
  Company Number: BR-ASTRAZENECA-2011SE35584

PATIENT
  Age: 78 Year
  Sex: Female
  Weight: 55 kg

DRUGS (3)
  1. ATACAND [Suspect]
     Route: 048
     Dates: start: 20100101, end: 20110607
  2. ATACAND [Suspect]
     Indication: HYPERTENSION
     Route: 048
     Dates: start: 20080101, end: 20100101
  3. LEVOTHYROXINE SODIUM [Concomitant]
     Route: 048
     Dates: start: 20060101

REACTIONS (6)
  - ELECTROCARDIOGRAM ABNORMAL [None]
  - DRUG INEFFECTIVE [None]
  - COLITIS [None]
  - BLOOD PRESSURE INADEQUATELY CONTROLLED [None]
  - ECHOCARDIOGRAM ABNORMAL [None]
  - CEREBROVASCULAR ACCIDENT [None]
